FAERS Safety Report 13523689 (Version 1)
Quarter: 2017Q2

REPORT INFORMATION
  Report Type: Spontaneous
  Country: US (occurrence: US)
  Receive Date: 20170508
  Receipt Date: 20170508
  Transmission Date: 20170830
  Serious: No
  Sender: FDA-Public Use
  Company Number: US-VIFOR (INTERNATIONAL) INC.-VIT-2017-01254

PATIENT
  Sex: Male

DRUGS (16)
  1. ACETYLSALICYLIC ACID [Concomitant]
     Active Substance: ASPIRIN
  2. NEPHRO-VITE RX [Concomitant]
  3. OMEPRAZOLE. [Concomitant]
     Active Substance: OMEPRAZOLE
  4. SERTRALINE HYDROCHLORIDE. [Concomitant]
     Active Substance: SERTRALINE HYDROCHLORIDE
  5. VELTASSA [Suspect]
     Active Substance: PATIROMER
     Indication: HYPERKALAEMIA
     Route: 048
     Dates: start: 20160602
  6. CALCITRIOL. [Concomitant]
     Active Substance: CALCITRIOL
  7. RENVELA [Concomitant]
     Active Substance: SEVELAMER CARBONATE
  8. CARVEDILOL. [Concomitant]
     Active Substance: CARVEDILOL
  9. PARACETAMOL [Concomitant]
     Active Substance: ACETAMINOPHEN
  10. ATORVASTATIN CALCIUM. [Concomitant]
     Active Substance: ATORVASTATIN CALCIUM
  11. GABAPENTIN. [Concomitant]
     Active Substance: GABAPENTIN
  12. LEVODOPA [Concomitant]
     Active Substance: LEVODOPA
  13. FOLIC ACID. [Concomitant]
     Active Substance: FOLIC ACID
  14. AMLODIPINE BESILATE [Concomitant]
     Active Substance: AMLODIPINE BESYLATE
  15. CLOBETASOL PROPIONATE. [Concomitant]
     Active Substance: CLOBETASOL PROPIONATE
  16. COLECALCIFEROL [Concomitant]
     Active Substance: CHOLECALCIFEROL

REACTIONS (1)
  - Inappropriate schedule of drug administration [Unknown]
